FAERS Safety Report 15387065 (Version 1)
Quarter: 2018Q3

REPORT INFORMATION
  Report Type: Spontaneous
  Country: US (occurrence: US)
  Receive Date: 20180914
  Receipt Date: 20180914
  Transmission Date: 20181010
  Serious: Yes (Other)
  Sender: FDA-Public Use
  Company Number: US-SA-2017SA260856

PATIENT
  Age: 42 Year
  Sex: Female
  Weight: 104.36 kg

DRUGS (11)
  1. ANZEMET [Concomitant]
     Active Substance: DOLASETRON MESYLATE
  2. DECADRON [DEXAMETHASONE] [Concomitant]
  3. DIGOXIN. [Concomitant]
     Active Substance: DIGOXIN
     Dosage: UNK
     Dates: start: 200201
  4. HERCEPTIN [Concomitant]
     Active Substance: TRASTUZUMAB
  5. CYCLOPHOSPHAMIDE. [Concomitant]
     Active Substance: CYCLOPHOSPHAMIDE
  6. TAXOTERE [Suspect]
     Active Substance: DOCETAXEL
     Indication: BREAST CANCER FEMALE
     Dosage: 70 MG, QW
     Route: 042
     Dates: start: 20040604, end: 20040604
  7. TAXOTERE [Suspect]
     Active Substance: DOCETAXEL
     Dosage: 70 MG, QW
     Route: 042
     Dates: start: 20040617, end: 20040617
  8. DOXORUBICIN [Concomitant]
     Active Substance: DOXORUBICIN
  9. 5?FLUOROURACIL [FLUOROURACIL SODIUM] [Concomitant]
  10. FUROSEMIDE. [Concomitant]
     Active Substance: FUROSEMIDE
     Dosage: UNK
     Dates: start: 200201
  11. KLOR?CON [Concomitant]
     Active Substance: POTASSIUM CHLORIDE

REACTIONS (2)
  - Alopecia [Recovering/Resolving]
  - Psychological trauma [Unknown]

NARRATIVE: CASE EVENT DATE: 20041217
